FAERS Safety Report 11723287 (Version 2)
Quarter: 2015Q4

REPORT INFORMATION
  Report Type: Spontaneous
  Country: US (occurrence: US)
  Receive Date: 20151111
  Receipt Date: 20151228
  Transmission Date: 20160304
  Serious: Yes (Hospitalization, Other)
  Sender: FDA-Public Use
  Company Number: US-PFIZER INC-2015378072

PATIENT
  Age: 67 Year
  Sex: Female
  Weight: 53.24 kg

DRUGS (4)
  1. REVATIO [Suspect]
     Active Substance: SILDENAFIL CITRATE
     Indication: CARDIAC DISORDER
     Dosage: 40 MG, 3X/DAY
     Route: 048
     Dates: start: 2001
  2. REVATIO [Suspect]
     Active Substance: SILDENAFIL CITRATE
     Dosage: 40 MG, 3X/DAY
     Route: 048
  3. LASIX [Concomitant]
     Active Substance: FUROSEMIDE
     Indication: DIURETIC THERAPY
     Dosage: 40 MG, 2X/DAY
  4. LASIX [Concomitant]
     Active Substance: FUROSEMIDE
     Dosage: 80 MG, 2X/DAY
     Dates: start: 201510

REACTIONS (5)
  - Arrhythmia [Not Recovered/Not Resolved]
  - Bronchitis [Recovered/Resolved]
  - Cardiac failure congestive [Not Recovered/Not Resolved]
  - Malaise [Unknown]
  - Product use issue [Not Recovered/Not Resolved]

NARRATIVE: CASE EVENT DATE: 2011
